FAERS Safety Report 19804827 (Version 1)
Quarter: 2021Q3

REPORT INFORMATION
  Report Type: Spontaneous
  Country: TH (occurrence: TH)
  Receive Date: 20210908
  Receipt Date: 20210908
  Transmission Date: 20211014
  Serious: Yes (Other)
  Sender: FDA-Public Use
  Company Number: TH-LUPIN PHARMACEUTICALS INC.-2021-16781

PATIENT
  Age: 40 Year
  Sex: Male

DRUGS (5)
  1. CISATRACURIUM. [Suspect]
     Active Substance: CISATRACURIUM
     Indication: DRUG THERAPY
     Dosage: UNK
     Route: 065
     Dates: start: 2015
  2. DESFLURANE. [Suspect]
     Active Substance: DESFLURANE
     Indication: DRUG THERAPY
     Dosage: UNK
     Route: 065
     Dates: start: 2015
  3. MORPHINE [Suspect]
     Active Substance: MORPHINE
     Indication: DRUG THERAPY
     Dosage: UNK
     Route: 065
     Dates: start: 2015
  4. NITROUS OXIDE. [Suspect]
     Active Substance: NITROUS OXIDE
     Indication: DRUG THERAPY
     Dosage: UNK
     Route: 065
     Dates: start: 2015
  5. THIOPENTAL [Suspect]
     Active Substance: THIOPENTAL
     Indication: DRUG THERAPY
     Dosage: UNK
     Route: 065
     Dates: start: 2015

REACTIONS (1)
  - Drug ineffective [Unknown]

NARRATIVE: CASE EVENT DATE: 2015
